FAERS Safety Report 8296610-4 (Version None)
Quarter: 2012Q2

REPORT INFORMATION
  Report Type: 
  Country: None (occurrence: None)
  Receive Date: 20120418
  Receipt Date: 20120418
  Transmission Date: 20120825
  Serious: Yes (Disabling)
  Sender: FDA-Public Use
  Company Number: None

PATIENT
  Age: 24 Year
  Sex: Female
  Weight: 77.11 kg

DRUGS (2)
  1. TOPIRAMATE [Suspect]
     Indication: WEIGHT CONTROL
     Dosage: 25 MG
     Route: 048
     Dates: start: 20120216, end: 20120316
  2. ADIPEX [Concomitant]

REACTIONS (11)
  - WEIGHT DECREASED [None]
  - DRY EYE [None]
  - EYE PRURITUS [None]
  - ANGLE CLOSURE GLAUCOMA [None]
  - MIGRAINE [None]
  - IMPAIRED WORK ABILITY [None]
  - INTRAOCULAR PRESSURE INCREASED [None]
  - VISION BLURRED [None]
  - EYE PAIN [None]
  - OCULAR HYPERAEMIA [None]
  - PHOTOPHOBIA [None]
